FAERS Safety Report 11540642 (Version 1)
Quarter: 2015Q3

REPORT INFORMATION
  Report Type: Spontaneous
  Country: US (occurrence: US)
  Receive Date: 20150923
  Receipt Date: 20150923
  Transmission Date: 20151125
  Serious: No
  Sender: FDA-Public Use
  Company Number: US-BEH-2015051591

PATIENT
  Sex: Female
  Weight: 76 kg

DRUGS (30)
  1. ACETAMINOPHEN. [Concomitant]
     Active Substance: ACETAMINOPHEN
     Route: 048
  2. DIPHENHYDRAMINE. [Concomitant]
     Active Substance: DIPHENHYDRAMINE
     Indication: ANAPHYLACTIC REACTION
     Dosage: PRN ANA
     Route: 042
  3. LIDOCAINE/PRILOCAINE [Concomitant]
     Indication: PREMEDICATION
     Dosage: 2.5% PRIOR
     Route: 061
  4. ACCOLATE [Concomitant]
     Active Substance: ZAFIRLUKAST
     Dosage: 1 TAB DAILY
     Route: 048
  5. COENZYME [Concomitant]
     Active Substance: UBIDECARENONE
     Route: 048
  6. KLONOPIN [Concomitant]
     Active Substance: CLONAZEPAM
     Dosage: 1 TAB HS
     Route: 048
  7. NEXIUM [Concomitant]
     Active Substance: ESOMEPRAZOLE MAGNESIUM
     Dosage: 1 CAP QD
     Route: 048
  8. GNP VITAMIN C [Concomitant]
     Dosage: 5 ML UD
  9. OMEGA 3 [Concomitant]
     Active Substance: OMEGA-3 FATTY ACIDS
     Dosage: SOFTGEL, 1 CAP QD
     Route: 048
  10. SPORANOX [Concomitant]
     Active Substance: ITRACONAZOLE\SODIUM CHLORIDE
  11. 1 CUP WATER+1 TSP SALT+1/2 TSP VINEGAR [Concomitant]
     Dosage: 1 SPARY DAILY
     Route: 045
  12. DAILY MULTIVITAMIN [Concomitant]
     Active Substance: VITAMINS
     Dosage: 1 TAB QD
     Route: 048
  13. CYANACOBALAMIN [Concomitant]
     Dosage: 1000 MCG/ML
     Route: 030
  14. OTHER MINERAL SUPPLEMENTS [Concomitant]
     Route: 048
  15. DIPHENHYDRAMINE. [Concomitant]
     Active Substance: DIPHENHYDRAMINE
     Indication: ANAPHYLACTIC REACTION
     Dosage: PRN ANA
     Route: 048
  16. LEVAQUIN [Concomitant]
     Active Substance: LEVOFLOXACIN
     Route: 048
  17. CIPROFLOXACIN HCL [Concomitant]
     Active Substance: CIPROFLOXACIN HYDROCHLORIDE
     Dosage: 1 DOSE UD
     Route: 048
  18. HYDROCODONE BITARTRATE AND ACETAMINOPHEN [Concomitant]
     Active Substance: ACETAMINOPHEN\HYDROCODONE BITARTRATE
     Route: 048
  19. ASTELIN [Concomitant]
     Active Substance: AZELASTINE HYDROCHLORIDE
     Dosage: 274 MCG, 2 SPARYS FOR PRN
     Route: 045
  20. CVS VITAMIN D [Concomitant]
     Dosage: 1 TAB QD
     Route: 048
  21. AMBIEN CR [Concomitant]
     Active Substance: ZOLPIDEM TARTRATE
     Dosage: 1 TAB PRN
     Route: 048
  22. HEPARIN [Concomitant]
     Active Substance: HEPARIN SODIUM
     Dosage: 100 UNITS/ML FLUSH
     Route: 042
  23. L-M-X [Concomitant]
     Indication: PREMEDICATION
     Dosage: 4% PRIOR
     Route: 061
  24. WELCHOL [Concomitant]
     Active Substance: COLESEVELAM HYDROCHLORIDE
     Dosage: 3 TABS A DAY
     Route: 048
  25. PRIVIGEN [Suspect]
     Active Substance: HUMAN IMMUNOGLOBULIN G
     Indication: BLOOD IMMUNOGLOBULIN G DECREASED
     Route: 042
  26. SODIUM CHLORIDE. [Concomitant]
     Active Substance: SODIUM CHLORIDE
     Route: 042
  27. CARVEDILOL. [Concomitant]
     Active Substance: CARVEDILOL
     Dosage: 1 DOSE UD
     Route: 048
  28. EPIPEN AUTOINJECTOR [Concomitant]
     Dosage: PRN ANA
     Route: 030
  29. PREDNISONE. [Concomitant]
     Active Substance: PREDNISONE
     Route: 048
  30. HEPARIN [Concomitant]
     Active Substance: HEPARIN SODIUM
     Dosage: 10 UNITS/ML FLUSH
     Route: 042

REACTIONS (1)
  - Infection [Unknown]
